FAERS Safety Report 18418996 (Version 1)
Quarter: 2020Q4

REPORT INFORMATION
  Report Type: Spontaneous
  Country: US (occurrence: US)
  Receive Date: 20201022
  Receipt Date: 20201022
  Transmission Date: 20210114
  Serious: Yes (Hospitalization)
  Sender: FDA-Public Use
  Company Number: None

PATIENT
  Age: 74 Year
  Sex: Female
  Weight: 74.8 kg

DRUGS (13)
  1. OMEPRAZOLE 40MG [Concomitant]
     Active Substance: OMEPRAZOLE
  2. PERCOCET [Concomitant]
     Active Substance: ACETAMINOPHEN\OXYCODONE HYDROCHLORIDE
  3. ALPRAZOLAM 0.25MG [Concomitant]
     Active Substance: ALPRAZOLAM
  4. TRADJENTA [Concomitant]
     Active Substance: LINAGLIPTIN
  5. CARVEDILOL 3.125MG [Concomitant]
     Active Substance: CARVEDILOL
  6. IBRANCE [Suspect]
     Active Substance: PALBOCICLIB
     Indication: BREAST CANCER
     Route: 048
     Dates: start: 20201006, end: 20201019
  7. ENTRESTO 24-26MG [Concomitant]
  8. SIMVASTATIN 5MG [Concomitant]
  9. MORPHINE SULFATE 15MG [Concomitant]
     Active Substance: MORPHINE SULFATE
  10. SPIRONOLACTONE 25MG [Concomitant]
     Active Substance: SPIRONOLACTONE
  11. FUROSEMIDE 20 MG [Concomitant]
     Active Substance: FUROSEMIDE
  12. GABAPENTIN 400MG [Concomitant]
     Active Substance: GABAPENTIN
  13. FULVESTRANT 250MG [Concomitant]
     Active Substance: FULVESTRANT

REACTIONS (1)
  - General physical health deterioration [None]

NARRATIVE: CASE EVENT DATE: 20201012
